FAERS Safety Report 5780051-5 (Version None)
Quarter: 2008Q2

REPORT INFORMATION
  Report Type: 
  Country: None (occurrence: None)
  Receive Date: 20080620
  Receipt Date: 20080610
  Transmission Date: 20081010
  Serious: Yes (Death)
  Sender: FDA-Public Use
  Company Number: US-ROCHE-566896

PATIENT
  Sex: Male

DRUGS (4)
  1. XELODA [Suspect]
     Indication: NEOPLASM
     Dosage: PATIENT COMPLETED 10 DAY COURSE OF TREATMENT.
     Route: 065
     Dates: start: 20070221, end: 20070301
  2. XELODA [Suspect]
     Dosage: PATIENT COMPLETED 10 DAY COURSE OF TREATMENT.
     Route: 065
     Dates: start: 20070316, end: 20070326
  3. ERBITUX [Suspect]
     Indication: NEOPLASM
     Route: 065
     Dates: start: 20070221
  4. TAXOTERE [Suspect]
     Indication: NEOPLASM
     Dosage: PATIENT COMPLETED TWO COURSES OF TREATMENT.
     Route: 065
     Dates: start: 20070901

REACTIONS (3)
  - HEAD AND NECK CANCER [None]
  - OEDEMA PERIPHERAL [None]
  - STOMATITIS [None]
